FAERS Safety Report 4356928-4 (Version None)
Quarter: 2004Q2

REPORT INFORMATION
  Report Type: 
  Country: None (occurrence: None)
  Receive Date: 20040507
  Receipt Date: 20040420
  Transmission Date: 20050107
  Serious: Yes (Death, Hospitalization)
  Sender: FDA-Public Use
  Company Number: USA040158042

PATIENT
  Age: 73 Year
  Sex: Male

DRUGS (2)
  1. FORTEO [Suspect]
     Indication: ARTHRITIS
     Dosage: 20 UG/1 DAY
     Dates: start: 20030923
  2. FORTEO [Suspect]
     Indication: OSTEOPOROSIS
     Dosage: 20 UG/1 DAY
     Dates: start: 20030923

REACTIONS (3)
  - CEREBROVASCULAR ACCIDENT [None]
  - FALL [None]
  - PNEUMONIA [None]
